FAERS Safety Report 5961834-5 (Version None)
Quarter: 2008Q4

REPORT INFORMATION
  Report Type: 
  Country: None (occurrence: None)
  Receive Date: 20081121
  Receipt Date: 20080107
  Transmission Date: 20090506
  Serious: No
  Sender: FDA-Public Use
  Company Number: US-BRISTOL-MYERS SQUIBB COMPANY-14034482

PATIENT
  Sex: Female

DRUGS (4)
  1. AVALIDE [Suspect]
  2. PRANDIN [Suspect]
  3. LOPRESSOR [Suspect]
  4. XANAX [Suspect]

REACTIONS (3)
  - DIZZINESS [None]
  - NERVOUSNESS [None]
  - SOMNOLENCE [None]
